FAERS Safety Report 5265264-3 (Version None)
Quarter: 2007Q1

REPORT INFORMATION
  Report Type: 
  Country: None (occurrence: None)
  Receive Date: 20061213
  Receipt Date: 20040108
  Transmission Date: 20070707
  Serious: Yes (Other)
  Sender: FDA-Public Use
  Company Number: 2003UW09129

PATIENT
  Age: 70 Year
  Sex: Female
  Weight: 79.3795 kg

DRUGS (5)
  1. IRESSA [Suspect]
     Indication: NON-SMALL CELL LUNG CANCER
     Dates: start: 20021001
  2. BABY ACETYLSALICYLIC ACID [Suspect]
  3. LAMISIL [Suspect]
  4. PAXIL [Concomitant]
  5. CELEBREX [Concomitant]

REACTIONS (9)
  - ACNE [None]
  - DRUG INTERACTION POTENTIATION [None]
  - DRY SKIN [None]
  - HAIR GROWTH ABNORMAL [None]
  - HYPOTRICHOSIS [None]
  - ONYCHOMYCOSIS [None]
  - PARONYCHIA [None]
  - SKIN DISORDER [None]
  - SKIN LACERATION [None]
